FAERS Safety Report 10490740 (Version 1)
Quarter: 2014Q4

REPORT INFORMATION
  Report Type: Spontaneous
  Country: US (occurrence: US)
  Receive Date: 20141002
  Receipt Date: 20141002
  Transmission Date: 20150528
  Serious: No
  Sender: FDA-Public Use
  Company Number: US-GLAXOSMITHKLINE-A1041044A

PATIENT
  Age: 75 Year
  Sex: Male

DRUGS (10)
  1. ATENOLOL. [Concomitant]
     Active Substance: ATENOLOL
  2. EZETROL [Concomitant]
     Active Substance: EZETIMIBE
  3. IBUPROFEN. [Concomitant]
     Active Substance: IBUPROFEN
  4. SIMVASTATIN. [Concomitant]
     Active Substance: SIMVASTATIN
  5. BABY ASPIRIN [Concomitant]
     Active Substance: ASPIRIN
  6. CHLORAZEPAM [Concomitant]
  7. AMITRIPTYLINE [Concomitant]
     Active Substance: AMITRIPTYLINE
  8. ADVAIR HFA [Suspect]
     Active Substance: FLUTICASONE PROPIONATE\SALMETEROL XINAFOATE
     Indication: ASTHMA
     Dosage: 1PUFF TWICE PER DAY
     Route: 055
  9. METFORMIN [Concomitant]
     Active Substance: METFORMIN HYDROCHLORIDE
  10. CLAVIX [Concomitant]

REACTIONS (3)
  - Product quality issue [Unknown]
  - Chest pain [Unknown]
  - Dyspnoea [Unknown]

NARRATIVE: CASE EVENT DATE: 201309
